FAERS Safety Report 21040942 (Version 2)
Quarter: 2022Q3

REPORT INFORMATION
  Report Type: Spontaneous
  Country: None (occurrence: CA)
  Receive Date: 20220704
  Receipt Date: 20220706
  Transmission Date: 20221026
  Serious: Yes (Other)
  Sender: FDA-Public Use
  Company Number: CA-B.Braun Medical Inc.-2130524

PATIENT
  Sex: Female

DRUGS (20)
  1. POTASSIUM CHLORIDE [Suspect]
     Active Substance: POTASSIUM CHLORIDE
  2. AMLODIPINE BESYLATE [Suspect]
     Active Substance: AMLODIPINE BESYLATE
  3. CALCIUM CARBONATE [Suspect]
     Active Substance: CALCIUM CARBONATE
  4. CHLORPROMAZINE [Suspect]
     Active Substance: CHLORPROMAZINE
  5. CODEINE [Suspect]
     Active Substance: CODEINE
  6. ERYTHROMYCIN [Suspect]
     Active Substance: ERYTHROMYCIN
  7. GABAPENTIN [Suspect]
     Active Substance: GABAPENTIN
  8. GADOBUTROL [Suspect]
     Active Substance: GADOBUTROL
  9. LEVOMEPROMAZINE [Suspect]
     Active Substance: LEVOMEPROMAZINE
  10. PENICILLIN V POTASSIUM [Suspect]
     Active Substance: PENICILLIN V POTASSIUM
  11. PERINDOPRIL [Suspect]
     Active Substance: PERINDOPRIL
  12. POTASSIUM CHLORIDE [Suspect]
     Active Substance: POTASSIUM CHLORIDE
  13. POTASSIUM CITRATE [Suspect]
     Active Substance: POTASSIUM CITRATE
  14. PROCHLORPERAZINE [Suspect]
     Active Substance: PROCHLORPERAZINE
  15. RIBOFLAVIN [Suspect]
     Active Substance: RIBOFLAVIN
  16. ALBUTEROL [Suspect]
     Active Substance: ALBUTEROL
  17. SUMATRIPTAN SUCCINATE [Suspect]
     Active Substance: SUMATRIPTAN SUCCINATE
  18. TRYPTOPHAN [Suspect]
     Active Substance: TRYPTOPHAN
  19. TYLENOL [Suspect]
     Active Substance: ACETAMINOPHEN
  20. XANTOFYL PALMITATE [Suspect]
     Active Substance: XANTOFYL PALMITATE

REACTIONS (9)
  - Asthma [Unknown]
  - Drug hypersensitivity [Unknown]
  - Drug ineffective [Unknown]
  - Hypotension [Unknown]
  - Influenza like illness [Unknown]
  - Myocardial infarction [Unknown]
  - Product use complaint [Unknown]
  - Pruritus [Unknown]
  - Taste disorder [Unknown]
